FAERS Safety Report 22224410 (Version 1)
Quarter: 2023Q2

REPORT INFORMATION
  Report Type: Spontaneous
  Country: US (occurrence: US)
  Receive Date: 20230418
  Receipt Date: 20230418
  Transmission Date: 20230722
  Serious: No
  Sender: FDA-Public Use
  Company Number: US-ABBVIE-4710537

PATIENT
  Sex: Male

DRUGS (1)
  1. RINVOQ [Suspect]
     Active Substance: UPADACITINIB
     Indication: Dermatitis atopic
     Dosage: STOP DATE 2023?FORM STRENGTH 15 MG
     Route: 048
     Dates: start: 202302

REACTIONS (4)
  - Nephrolithiasis [Unknown]
  - Hepatomegaly [Unknown]
  - Blood bilirubin increased [Unknown]
  - Back pain [Unknown]
